FAERS Safety Report 25325490 (Version 2)
Quarter: 2025Q3

REPORT INFORMATION
  Report Type: Spontaneous
  Country: EU (occurrence: EU)
  Receive Date: 20250516
  Receipt Date: 20250715
  Transmission Date: 20251020
  Serious: Yes (Other)
  Sender: MYLAN
  Company Number: EU-TEVA-VS-3326404

PATIENT
  Age: 89 Year
  Sex: Male

DRUGS (12)
  1. SPIRONOLACTONE [Suspect]
     Active Substance: SPIRONOLACTONE
     Indication: Product used for unknown indication
     Dosage: 25 MILLIGRAM, QD,(25 MG = 1/2- 1/2 - 0 - 0)
  2. SPIRONOLACTONE [Suspect]
     Active Substance: SPIRONOLACTONE
     Dosage: 25 MILLIGRAM, QD,(25 MG = 1/2- 1/2 - 0 - 0)
     Route: 065
  3. SPIRONOLACTONE [Suspect]
     Active Substance: SPIRONOLACTONE
     Dosage: 25 MILLIGRAM, QD,(25 MG = 1/2- 1/2 - 0 - 0)
     Route: 065
  4. SPIRONOLACTONE [Suspect]
     Active Substance: SPIRONOLACTONE
     Dosage: 25 MILLIGRAM, QD,(25 MG = 1/2- 1/2 - 0 - 0)
  5. FUROSEMIDE [Suspect]
     Active Substance: FUROSEMIDE
     Indication: Product used for unknown indication
     Dosage: QD (1 - 1/2 - 0 - 0)
  6. FUROSEMIDE [Suspect]
     Active Substance: FUROSEMIDE
     Dosage: QD (1 - 1/2 - 0 - 0)
     Route: 065
  7. FUROSEMIDE [Suspect]
     Active Substance: FUROSEMIDE
     Dosage: QD (1 - 1/2 - 0 - 0)
     Route: 065
  8. FUROSEMIDE [Suspect]
     Active Substance: FUROSEMIDE
     Dosage: QD (1 - 1/2 - 0 - 0)
  9. NOVALGIN (METAMIZOLE SODIUM) [Suspect]
     Active Substance: METAMIZOLE SODIUM
     Indication: Procedural pain
     Dosage: QD (DROPS 1 - 3 X DAILY)
  10. NOVALGIN (METAMIZOLE SODIUM) [Suspect]
     Active Substance: METAMIZOLE SODIUM
     Dosage: QD (DROPS 1 - 3 X DAILY)
     Route: 065
  11. NOVALGIN (METAMIZOLE SODIUM) [Suspect]
     Active Substance: METAMIZOLE SODIUM
     Dosage: QD (DROPS 1 - 3 X DAILY)
     Route: 065
  12. NOVALGIN (METAMIZOLE SODIUM) [Suspect]
     Active Substance: METAMIZOLE SODIUM
     Dosage: QD (DROPS 1 - 3 X DAILY)

REACTIONS (4)
  - Ascites [Recovered/Resolved]
  - Limb operation [Unknown]
  - Weight decreased [Unknown]
  - Oedema peripheral [Recovered/Resolved]
